FAERS Safety Report 25064475 (Version 1)
Quarter: 2025Q1

REPORT INFORMATION
  Report Type: Spontaneous
  Country: US (occurrence: US)
  Receive Date: 20250311
  Receipt Date: 20250311
  Transmission Date: 20250409
  Serious: No
  Sender: DR REDDYS
  Company Number: US-DRL-USA-USA/2025/02/003213

PATIENT
  Age: 13 Year
  Sex: Female

DRUGS (3)
  1. ACCUTANE [Suspect]
     Active Substance: ISOTRETINOIN
     Indication: Product used for unknown indication
     Route: 065
     Dates: start: 202406, end: 202501
  2. ACCUTANE [Suspect]
     Active Substance: ISOTRETINOIN
     Dosage: ON 01-FEB-2025 WAS DRUG INTERRUPTED
     Route: 065
  3. ZYRTEC [Concomitant]
     Active Substance: CETIRIZINE HYDROCHLORIDE
     Indication: Hypersensitivity
     Route: 065

REACTIONS (1)
  - Blood triglycerides increased [Recovered/Resolved]

NARRATIVE: CASE EVENT DATE: 20250118
